FAERS Safety Report 9021285 (Version 1)
Quarter: 2013Q1

REPORT INFORMATION
  Report Type: Spontaneous
  Country: US (occurrence: US)
  Receive Date: 20130119
  Receipt Date: 20130119
  Transmission Date: 20140127
  Serious: No
  Sender: FDA-Public Use
  Company Number: US-ALLERGAN-1202441US

PATIENT
  Age: 62 Year
  Sex: Female

DRUGS (5)
  1. BOTOX? [Suspect]
     Indication: MIGRAINE
     Dosage: 120 UNITS, SINGLE
     Route: 030
     Dates: start: 20120217, end: 20120217
  2. IMITREX [Concomitant]
     Indication: MIGRAINE
     Dosage: UNK
  3. CELEBREX [Concomitant]
     Indication: PAIN
     Dosage: 200 MG, QD
     Route: 048
  4. SYNTHROID [Concomitant]
     Indication: HYPOTHYROIDISM
     Dosage: 75 ?G, QD
     Route: 048
  5. ELAVIL [Concomitant]
     Indication: PAIN
     Dosage: 75 MG, QHS
     Route: 048

REACTIONS (6)
  - Vitreous floaters [Not Recovered/Not Resolved]
  - Facial pain [Not Recovered/Not Resolved]
  - Eyelid ptosis [Unknown]
  - Musculoskeletal stiffness [Unknown]
  - Neck pain [Unknown]
  - Headache [Unknown]
